FAERS Safety Report 25361005 (Version 1)
Quarter: 2025Q2

REPORT INFORMATION
  Report Type: Report from Study
  Country: CN (occurrence: CN)
  Receive Date: 20250527
  Receipt Date: 20250527
  Transmission Date: 20250717
  Serious: Yes (Death)
  Sender: ROCHE
  Company Number: CN-ROCHE-10000290676

PATIENT
  Sex: Male
  Weight: 54 kg

DRUGS (43)
  1. POLATUZUMAB VEDOTIN [Suspect]
     Active Substance: POLATUZUMAB VEDOTIN
     Indication: Diffuse large B-cell lymphoma
     Route: 042
     Dates: start: 20231025, end: 20231025
  2. POLATUZUMAB VEDOTIN [Suspect]
     Active Substance: POLATUZUMAB VEDOTIN
     Route: 042
     Dates: start: 20231218, end: 20231218
  3. RITUXIMAB [Suspect]
     Active Substance: RITUXIMAB
     Indication: Diffuse large B-cell lymphoma
     Route: 042
     Dates: start: 20231024, end: 20231024
  4. RITUXIMAB [Suspect]
     Active Substance: RITUXIMAB
     Route: 042
     Dates: start: 20231217, end: 20231217
  5. GEMCITABINE [Suspect]
     Active Substance: GEMCITABINE
     Indication: Diffuse large B-cell lymphoma
     Route: 042
     Dates: start: 20231025, end: 20231025
  6. GEMCITABINE [Suspect]
     Active Substance: GEMCITABINE
     Route: 042
     Dates: start: 20231218, end: 20231218
  7. OXALIPLATIN [Suspect]
     Active Substance: OXALIPLATIN
     Indication: Diffuse large B-cell lymphoma
     Route: 042
     Dates: start: 20231025, end: 20231025
  8. OXALIPLATIN [Suspect]
     Active Substance: OXALIPLATIN
     Route: 042
     Dates: start: 20231218, end: 20231218
  9. Levofloxacin sodium chloride injection [Concomitant]
     Route: 042
     Dates: start: 20231023, end: 20231025
  10. Levofloxacin sodium chloride injection [Concomitant]
     Route: 042
     Dates: start: 20231022, end: 20231022
  11. Ambroxol Hydrochloride Capsules [Concomitant]
     Route: 048
     Dates: start: 20231024, end: 20231125
  12. Ambroxol Hydrochloride Capsules [Concomitant]
     Route: 048
     Dates: start: 20231023, end: 20231023
  13. METHYLPREDNISOLONE SODIUM SUCCINATE [Concomitant]
     Active Substance: METHYLPREDNISOLONE SODIUM SUCCINATE
     Route: 042
     Dates: start: 20231024, end: 20231024
  14. Promethazine needle [Concomitant]
     Route: 030
     Dates: start: 20231024, end: 20231024
  15. Promethazine needle [Concomitant]
     Route: 030
     Dates: start: 20231118, end: 20231119
  16. Omeprazole Enteric-coated Capsules [Concomitant]
     Route: 048
     Dates: start: 20231024, end: 20231025
  17. Sodium bicarbonate injection 5% [Concomitant]
     Route: 042
     Dates: start: 20231024, end: 20231025
  18. Sodium bicarbonate injection 5% [Concomitant]
     Route: 042
     Dates: start: 20231118, end: 20231121
  19. Sodium bicarbonate injection 5% [Concomitant]
     Route: 042
     Dates: start: 20231217, end: 20231218
  20. Compound paracetamol tablets [Concomitant]
     Route: 048
     Dates: start: 20231025, end: 20231025
  21. PROMETHAZINE [Concomitant]
     Active Substance: PROMETHAZINE HYDROCHLORIDE
     Route: 030
     Dates: start: 20231025, end: 20231026
  22. Pegylated recombinant human granulocyte stimulating factor injection [Concomitant]
     Route: 058
     Dates: start: 20231026, end: 20231026
  23. Pegylated recombinant human granulocyte stimulating factor injection [Concomitant]
     Route: 058
     Dates: start: 20231118, end: 20231118
  24. Pegylated recombinant human granulocyte stimulating factor injection [Concomitant]
     Route: 058
     Dates: start: 20231219, end: 20231219
  25. FENTANYL TRANSDERMAL SYSTEM [Concomitant]
     Active Substance: FENTANYL
     Dates: start: 20231020, end: 20231020
  26. FENTANYL TRANSDERMAL SYSTEM [Concomitant]
     Active Substance: FENTANYL
     Dates: start: 20231023, end: 20231023
  27. INDOMETHACIN [Concomitant]
     Active Substance: INDOMETHACIN
     Route: 050
     Dates: start: 20231022, end: 20231022
  28. LEUCOGEN [Concomitant]
     Active Substance: LEUCOGEN
     Route: 048
     Dates: start: 20231025, end: 20231109
  29. LEUCOGEN [Concomitant]
     Active Substance: LEUCOGEN
     Route: 048
     Dates: start: 20231120
  30. LEVOFLOXACIN [Concomitant]
     Active Substance: LEVOFLOXACIN
     Route: 048
     Dates: start: 20231025, end: 20231102
  31. Mecobalamine tablets [Concomitant]
     Route: 048
     Dates: start: 20231130, end: 20240118
  32. Potassium chloride sustained-release tablets [Concomitant]
     Route: 048
     Dates: start: 20231117, end: 20231117
  33. METHYLPREDNISOLONE SODIUM SUCCINATE [Concomitant]
     Active Substance: METHYLPREDNISOLONE SODIUM SUCCINATE
     Route: 042
     Dates: start: 20231118, end: 20231119
  34. METHYLPREDNISOLONE SODIUM SUCCINATE [Concomitant]
     Active Substance: METHYLPREDNISOLONE SODIUM SUCCINATE
     Route: 042
     Dates: start: 20231217, end: 20231218
  35. Compound acetaminophen tablets [Concomitant]
     Route: 048
     Dates: start: 20231118, end: 20231121
  36. Compound acetaminophen tablets [Concomitant]
     Route: 048
     Dates: start: 20231217, end: 20231218
  37. Montmorillonite powder [Concomitant]
     Route: 048
     Dates: start: 20231118, end: 20231120
  38. Montmorillonite powder [Concomitant]
     Route: 048
     Dates: start: 20231117, end: 20231117
  39. Palonosetron hydrochloride capsules [Concomitant]
     Route: 048
     Dates: start: 20231119, end: 20231119
  40. omeprazole enteric-coated capsules [Concomitant]
     Route: 048
     Dates: start: 20231217, end: 20231218
  41. PROMETHAZINE [Concomitant]
     Active Substance: PROMETHAZINE HYDROCHLORIDE
     Route: 030
     Dates: start: 20231217, end: 20231218
  42. PROMETHAZINE [Concomitant]
     Active Substance: PROMETHAZINE HYDROCHLORIDE
     Route: 030
     Dates: start: 20231118, end: 20231120
  43. OMEPRAZOLE [Concomitant]
     Active Substance: OMEPRAZOLE
     Route: 048
     Dates: start: 20231118, end: 20231120

REACTIONS (1)
  - Death [Fatal]
